FAERS Safety Report 13863786 (Version 1)
Quarter: 2017Q3

REPORT INFORMATION
  Report Type: Other
  Country: CN (occurrence: CN)
  Receive Date: 20170814
  Receipt Date: 20170814
  Transmission Date: 20171127
  Serious: Yes (Other)
  Sender: FDA-Public Use
  Company Number: CN-ASTELLAS-2017US031981

PATIENT
  Age: 45 Year
  Sex: Male

DRUGS (3)
  1. TACROLIMUS. [Suspect]
     Active Substance: TACROLIMUS
     Indication: LIVER TRANSPLANT
     Route: 048
     Dates: start: 19900101, end: 20170612
  2. BASILIXIMAB [Suspect]
     Active Substance: BASILIXIMAB
     Indication: LIVER TRANSPLANT
     Route: 065
     Dates: end: 20170612
  3. MYCOPHENOLATE SODIUM [Suspect]
     Active Substance: MYCOPHENOLATE SODIUM
     Indication: LIVER TRANSPLANT
     Dosage: UNK UNK, UNKNOWN FREQ.
     Route: 065
     Dates: end: 20170612

REACTIONS (16)
  - Skin degenerative disorder [Unknown]
  - Musculoskeletal pain [Unknown]
  - Abdominal pain [Unknown]
  - Diarrhoea [Unknown]
  - Rash macular [Unknown]
  - Lymphocyte count abnormal [Unknown]
  - Cough [Unknown]
  - Rash [Unknown]
  - Red blood cell count decreased [Unknown]
  - Thrombocytopenia [Unknown]
  - Erythema [Unknown]
  - Pyrexia [Unknown]
  - Mouth ulceration [Unknown]
  - Leukopenia [Unknown]
  - Pneumonia [Unknown]
  - Graft versus host disease [Unknown]

NARRATIVE: CASE EVENT DATE: 20160109
